FAERS Safety Report 16910187 (Version 3)
Quarter: 2019Q4

REPORT INFORMATION
  Report Type: Report from Study
  Country: IT (occurrence: IT)
  Receive Date: 20191011
  Receipt Date: 20191015
  Transmission Date: 20200122
  Serious: Yes (Hospitalization)
  Sender: FDA-Public Use
  Company Number: IT-JNJFOC-20191001529

PATIENT
  Age: 46 Year
  Sex: Male

DRUGS (2)
  1. ASALEX [Concomitant]
     Indication: COLITIS ULCERATIVE
     Route: 048
     Dates: start: 20160101
  2. STELARA [Suspect]
     Active Substance: USTEKINUMAB
     Indication: COLITIS ULCERATIVE
     Route: 042
     Dates: start: 20190801

REACTIONS (2)
  - Colectomy total [Recovered/Resolved with Sequelae]
  - Drug ineffective [Recovered/Resolved with Sequelae]

NARRATIVE: CASE EVENT DATE: 20190819
